FAERS Safety Report 10622154 (Version 1)
Quarter: 2014Q4

REPORT INFORMATION
  Report Type: Spontaneous
  Country: US (occurrence: None)
  Receive Date: 20141201
  Receipt Date: 20141201
  Transmission Date: 20150529
  Serious: Yes (Other)
  Sender: FDA-Public Use
  Company Number: None

PATIENT
  Age: 71 Year
  Sex: Female

DRUGS (12)
  1. ALBUTEROL. [Concomitant]
     Active Substance: ALBUTEROL
  2. FUROSEMIDE. [Concomitant]
     Active Substance: FUROSEMIDE
  3. PLAVASTATIN [Concomitant]
  4. COMBINENT [Concomitant]
  5. TADALAFIL [Concomitant]
     Active Substance: TADALAFIL
  6. CERIUIGUS [Concomitant]
  7. FEROUS [Concomitant]
  8. SULFATE TERBUTALINE [Concomitant]
     Active Substance: TERBUTALINE SULFATE
  9. KCI [Concomitant]
  10. PAULOPIASOLE [Concomitant]
  11. ADEMPAS [Suspect]
     Active Substance: RIOCIGUAT
     Indication: COR PULMONALE CHRONIC
     Dates: start: 20141027
  12. RANITIDINE [Concomitant]
     Active Substance: RANITIDINE\RANITIDINE HYDROCHLORIDE

REACTIONS (2)
  - Peripheral swelling [None]
  - Joint swelling [None]

NARRATIVE: CASE EVENT DATE: 20141119
